FAERS Safety Report 4524817-8 (Version None)
Quarter: 2004Q4

REPORT INFORMATION
  Report Type: 
  Country: None (occurrence: None)
  Receive Date: 20041117
  Receipt Date: 20031020
  Transmission Date: 20050328
  Serious: Yes (Other)
  Sender: FDA-Public Use
  Company Number: C2003-2848.01

PATIENT
  Age: 8 Year
  Sex: Male

DRUGS (9)
  1. CLOZAPINE [Suspect]
     Indication: PSYCHOTIC DISORDER
     Dosage: 50MG BID, ORAL
     Route: 048
  2. CLOZAPINE [Suspect]
     Indication: SCHIZOAFFECTIVE DISORDER
     Dosage: 50MG BID, ORAL
     Route: 048
  3. CLOZAPINE [Suspect]
     Indication: PSYCHOTIC DISORDER
     Dosage: 150 MG BID THEN 100MG BID, ORAL
     Route: 048
  4. CLOZAPINE [Suspect]
     Indication: SCHIZOAFFECTIVE DISORDER
     Dosage: 150 MG BID THEN 100MG BID, ORAL
     Route: 048
  5. DIVALPROEX SODIUM [Concomitant]
  6. GUANFACINE HCL [Concomitant]
  7. LITHIUM CARBONATE [Concomitant]
  8. SENNA CONCENTRATE [Concomitant]
  9. DOCUSATE [Concomitant]

REACTIONS (7)
  - DRY SKIN [None]
  - PHOTOSENSITIVITY REACTION [None]
  - RASH ERYTHEMATOUS [None]
  - RASH GENERALISED [None]
  - RASH MACULAR [None]
  - RASH PRURITIC [None]
  - RASH SCALY [None]
